FAERS Safety Report 17577572 (Version 4)
Quarter: 2020Q4

REPORT INFORMATION
  Report Type: Spontaneous
  Country: US (occurrence: US)
  Receive Date: 20200324
  Receipt Date: 20201205
  Transmission Date: 20210113
  Serious: No
  Sender: FDA-Public Use
  Company Number: US-SHIRE-US202011022

PATIENT
  Sex: Male

DRUGS (5)
  1. GATTEX [Suspect]
     Active Substance: TEDUGLUTIDE\WATER
     Indication: PRODUCT USED FOR UNKNOWN INDICATION
     Dosage: 0.3400 (UNIT UNKNOWN), 1X/DAY:QD
     Route: 058
     Dates: start: 20200219
  2. GATTEX [Suspect]
     Active Substance: TEDUGLUTIDE\WATER
     Indication: PRODUCT USED FOR UNKNOWN INDICATION
     Dosage: 0.3400 (UNIT UNKNOWN), 1X/DAY:QD
     Route: 058
     Dates: start: 20200219
  3. TPN [AMINO ACIDS NOS;CARBOHYDRATES NOS;MINERALS NOS;VITAMINS NOS] [Concomitant]
     Active Substance: AMINO ACIDS\CARBOHYDRATES\MINERALS\VITAMINS
     Indication: PRODUCT USED FOR UNKNOWN INDICATION
  4. GATTEX [Suspect]
     Active Substance: TEDUGLUTIDE\WATER
     Indication: PRODUCT USED FOR UNKNOWN INDICATION
     Dosage: 0.3400 (UNIT UNKNOWN), 1X/DAY:QD
     Route: 058
     Dates: start: 20200219
  5. GATTEX [Suspect]
     Active Substance: TEDUGLUTIDE\WATER
     Indication: PRODUCT USED FOR UNKNOWN INDICATION
     Dosage: 0.3400 (UNIT UNKNOWN), 1X/DAY:QD
     Route: 058
     Dates: start: 20200219

REACTIONS (2)
  - Weight increased [Not Recovered/Not Resolved]
  - Inappropriate schedule of product administration [Recovering/Resolving]
